FAERS Safety Report 17925805 (Version 1)
Quarter: 2020Q2

REPORT INFORMATION
  Report Type: Report from Study
  Country: None (occurrence: DE)
  Receive Date: 20200623
  Receipt Date: 20200623
  Transmission Date: 20200714
  Serious: Yes (Hospitalization, Other)
  Sender: FDA-Public Use
  Company Number: DE-ABBVIE-19K-062-3198686-00

PATIENT
  Age: 55 Year
  Sex: Male

DRUGS (3)
  1. DUODOPA [Suspect]
     Active Substance: CARBIDOPA\LEVODOPA
     Indication: PARKINSON^S DISEASE
     Dosage: MD 3 ML; CRD 6 ML/ H; CRN 3.6 ML/ H; ED 1 ML
     Route: 050
     Dates: start: 20140226, end: 20200330
  2. CLOZAPIN [Concomitant]
     Active Substance: CLOZAPINE
     Indication: PRODUCT USED FOR UNKNOWN INDICATION
  3. LORAZEPAM. [Concomitant]
     Active Substance: LORAZEPAM
     Indication: PRODUCT USED FOR UNKNOWN INDICATION

REACTIONS (2)
  - Coma [Recovering/Resolving]
  - Ileus [Recovering/Resolving]

NARRATIVE: CASE EVENT DATE: 201909
